FAERS Safety Report 24408424 (Version 1)
Quarter: 2024Q4

REPORT INFORMATION
  Report Type: Spontaneous
  Country: IT (occurrence: IT)
  Receive Date: 20241007
  Receipt Date: 20241007
  Transmission Date: 20250115
  Serious: Yes (Hospitalization)
  Sender: DAIICHI
  Company Number: IT-DSJP-DS-2024-101200-IT

PATIENT
  Age: 50 Year
  Sex: Male

DRUGS (2)
  1. TRASTUZUMAB DERUXTECAN [Suspect]
     Active Substance: TRASTUZUMAB DERUXTECAN
     Indication: Gastric cancer
     Dosage: 6.4 MG/KG, CYCLIC
     Route: 065
     Dates: start: 20240202, end: 20240202
  2. TRASTUZUMAB DERUXTECAN [Suspect]
     Active Substance: TRASTUZUMAB DERUXTECAN
     Indication: Oesophageal carcinoma
     Dosage: 6.4 MG/KG, CYCLIC
     Route: 065
     Dates: start: 20240828, end: 20240828

REACTIONS (1)
  - Oesophageal stenosis [Unknown]
